FAERS Safety Report 8304045-0 (Version None)
Quarter: 2012Q2

REPORT INFORMATION
  Report Type: 
  Country: None (occurrence: None)
  Receive Date: 20120418
  Receipt Date: 20120404
  Transmission Date: 20120825
  Serious: Yes (Other)
  Sender: FDA-Public Use
  Company Number: 2012MA004485

PATIENT
  Age: 22 Month
  Sex: Male
  Weight: 12.2471 kg

DRUGS (1)
  1. IBUPROFEN [Suspect]
     Indication: PRODUCT USED FOR UNKNOWN INDICATION
     Dosage: ;PRN;PO
     Route: 048

REACTIONS (2)
  - VOMITING [None]
  - ACCIDENTAL DRUG INTAKE BY CHILD [None]
